FAERS Safety Report 16552194 (Version 2)
Quarter: 2019Q3

REPORT INFORMATION
  Report Type: Spontaneous
  Country: US (occurrence: US)
  Receive Date: 20190710
  Receipt Date: 20190726
  Transmission Date: 20191004
  Serious: No
  Sender: FDA-Public Use
  Company Number: US-PFIZER INC-2019280131

PATIENT
  Sex: Male

DRUGS (2)
  1. LYRICA [Suspect]
     Active Substance: PREGABALIN
     Indication: PAIN
     Dosage: 450 MG, 2X/DAY (HE IS TAKING 450 MG IN THE MORNING AND 450 MG AT NIGHT.)
     Dates: start: 20190607
  2. LYRICA [Suspect]
     Active Substance: PREGABALIN
     Indication: POST HERPETIC NEURALGIA
     Dosage: 300 MG, 2X/DAY

REACTIONS (4)
  - Drug ineffective [Unknown]
  - Intentional product use issue [Unknown]
  - Dry mouth [Unknown]
  - Overdose [Unknown]

NARRATIVE: CASE EVENT DATE: 20190607
